FAERS Safety Report 5685244-3 (Version None)
Quarter: 2008Q1

REPORT INFORMATION
  Report Type: 
  Country: None (occurrence: None)
  Receive Date: 20080328
  Receipt Date: 20080318
  Transmission Date: 20080703
  Serious: Yes (Hospitalization, Other)
  Sender: FDA-Public Use
  Company Number: US-PFIZER INC-2008012899

PATIENT
  Sex: Female
  Weight: 61.7 kg

DRUGS (6)
  1. LYRICA [Suspect]
     Indication: ABDOMINAL OPERATION
     Dates: start: 20071030, end: 20071130
  2. LYRICA [Suspect]
     Indication: ABDOMINAL PAIN
  3. ORAL CONTRACEPTIVE NOS [Concomitant]
  4. TORADOL [Concomitant]
  5. IRON SULFATETHIAMIN COMPOUND TAB [Concomitant]
  6. DARVOCET-N [Concomitant]

REACTIONS (4)
  - ABDOMINAL PAIN [None]
  - BLADDER DISORDER [None]
  - ILEOCOLECTOMY [None]
  - MICTURITION DISORDER [None]
